FAERS Safety Report 8851853 (Version 2)
Quarter: 2013Q2

REPORT INFORMATION
  Report Type: Spontaneous
  Country: US (occurrence: US)
  Receive Date: 20121022
  Receipt Date: 20130628
  Transmission Date: 20140414
  Serious: No
  Sender: FDA-Public Use
  Company Number: US-009507513-1210USA004885

PATIENT
  Age: 61 Year
  Sex: Female
  Weight: 80.73 kg

DRUGS (1)
  1. PEGINTRON [Suspect]
     Dosage: 120 MICROGRAM/ 0.5 ML, QW
     Route: 058
     Dates: start: 20120601, end: 201212

REACTIONS (3)
  - Underdose [Unknown]
  - Product quality issue [Unknown]
  - No adverse event [Unknown]
